FAERS Safety Report 6308428-X (Version None)
Quarter: 2009Q3

REPORT INFORMATION
  Report Type: 
  Country: None (occurrence: None)
  Receive Date: 20090810
  Receipt Date: 20090803
  Transmission Date: 20100115
  Serious: Yes (Hospitalization)
  Sender: FDA-Public Use
  Company Number: 2009AL005064

PATIENT
  Age: 63 Year
  Sex: Male
  Weight: 56.0192 kg

DRUGS (5)
  1. LORAZEPAM [Suspect]
     Indication: INSOMNIA
     Dates: start: 20090701, end: 20090716
  2. SUNITINIB MALATE [Concomitant]
  3. LOSAZID [Concomitant]
  4. URSODIOL [Concomitant]
  5. FLURBIPROFEN [Concomitant]

REACTIONS (2)
  - DRUG ABUSE [None]
  - MENTAL STATUS CHANGES [None]
